FAERS Safety Report 11876004 (Version 1)
Quarter: 2015Q4

REPORT INFORMATION
  Report Type: Report from Study
  Country: CA (occurrence: CA)
  Receive Date: 20151229
  Receipt Date: 20151229
  Transmission Date: 20160305
  Serious: Yes (Other)
  Sender: FDA-Public Use
  Company Number: CA-JNJFOC-20151219289

PATIENT
  Sex: Female

DRUGS (1)
  1. SIMPONI [Suspect]
     Active Substance: GOLIMUMAB
     Indication: RHEUMATOID ARTHRITIS
     Route: 058
     Dates: start: 20150909

REACTIONS (4)
  - Sinusitis [Not Recovered/Not Resolved]
  - Lichen sclerosus [Unknown]
  - Drug ineffective [Unknown]
  - Fungal infection [Not Recovered/Not Resolved]
